FAERS Safety Report 7514965-2 (Version None)
Quarter: 2011Q2

REPORT INFORMATION
  Report Type: 
  Country: None (occurrence: None)
  Receive Date: 20110425
  Receipt Date: 20100408
  Transmission Date: 20111010
  Serious: Yes (Other)
  Sender: FDA-Public Use
  Company Number: MC201000120

PATIENT

DRUGS (3)
  1. ASPIRIN [Concomitant]
  2. PLAVIX [Concomitant]
  3. ANGIOMAX [Suspect]
     Indication: ANGIOPLASTY

REACTIONS (2)
  - OFF LABEL USE [None]
  - THROMBOSIS [None]
